FAERS Safety Report 6187130-1 (Version None)
Quarter: 2009Q2

REPORT INFORMATION
  Report Type: 
  Country: None (occurrence: None)
  Receive Date: 20090508
  Receipt Date: 20090428
  Transmission Date: 20091009
  Serious: Yes (Hospitalization)
  Sender: FDA-Public Use
  Company Number: 2009004285

PATIENT
  Age: 72 Year
  Sex: Female
  Weight: 80.7 kg

DRUGS (2)
  1. TRISENOX [Suspect]
     Indication: MYELODYSPLASTIC SYNDROME
     Dosage: 5.7143 MG (20 MG, 2 IN 1 WK)
     Dates: start: 20080310
  2. DECITABINE (DECITABINE) [Suspect]
     Indication: MYELODYSPLASTIC SYNDROME
     Dosage: 18 MG (18 MG, 1 IN 1 D), INTRAVENOUS
     Route: 042
     Dates: start: 20080310

REACTIONS (7)
  - CHILLS [None]
  - ESCHERICHIA BACTERAEMIA [None]
  - HAEMOGLOBIN DECREASED [None]
  - NAUSEA [None]
  - PYREXIA [None]
  - URINARY TRACT INFECTION [None]
  - VOMITING [None]
